FAERS Safety Report 7343183-6 (Version None)
Quarter: 2011Q1

REPORT INFORMATION
  Report Type: 
  Country: None (occurrence: None)
  Receive Date: 20110308
  Receipt Date: 20110308
  Transmission Date: 20110831
  Serious: Yes (Hospitalization)
  Sender: FDA-Public Use
  Company Number: None

PATIENT
  Sex: Female
  Weight: 91.36 kg

DRUGS (12)
  1. LORAZEPAM [Concomitant]
  2. COTRIM [Concomitant]
  3. FOLIC ACID [Concomitant]
  4. ALOXI [Concomitant]
  5. MAGOXIDE [Concomitant]
  6. VITAMIN B6 [Concomitant]
  7. TAXOL [Suspect]
     Dosage: 255 MG
     Dates: end: 20110203
  8. DECADRON [Concomitant]
  9. ADVIL LIQUI-GELS [Concomitant]
  10. BENADRYL [Concomitant]
  11. CALCIUM [Concomitant]
  12. ZOLOFT [Concomitant]

REACTIONS (9)
  - OEDEMA PERIPHERAL [None]
  - HYPONATRAEMIA [None]
  - HYPOMAGNESAEMIA [None]
  - INFLUENZA [None]
  - SYNCOPE [None]
  - ANAEMIA [None]
  - HAEMOGLOBIN DECREASED [None]
  - PLATELET COUNT DECREASED [None]
  - ACUTE SINUSITIS [None]
